FAERS Safety Report 22118628 (Version 5)
Quarter: 2024Q1

REPORT INFORMATION
  Report Type: Other
  Country: BE (occurrence: None)
  Receive Date: 20230321
  Receipt Date: 20240222
  Transmission Date: 20240410
  Serious: Yes (Hospitalization)
  Sender: FDA-Public Use
  Company Number: BE-ROCHE-3309825

PATIENT
  Age: 62 Year
  Sex: Male
  Weight: 101.5 kg

DRUGS (42)
  1. OCRELIZUMAB [Suspect]
     Active Substance: OCRELIZUMAB
     Indication: Relapsing-remitting multiple sclerosis
     Dosage: DOSE LAST STUDY DRUG ADMIN PRIOR AE AND SAE: 600 MG. START DATE AND END DATE OF MOST RECENT DOSE OF
     Route: 042
     Dates: start: 20191223
  2. OCRELIZUMAB [Suspect]
     Active Substance: OCRELIZUMAB
     Route: 042
     Dates: start: 20200624, end: 20200624
  3. OCRELIZUMAB [Suspect]
     Active Substance: OCRELIZUMAB
     Route: 042
     Dates: start: 20210720, end: 20210720
  4. OCRELIZUMAB [Suspect]
     Active Substance: OCRELIZUMAB
     Route: 042
     Dates: start: 20220714, end: 20220714
  5. OCRELIZUMAB [Suspect]
     Active Substance: OCRELIZUMAB
     Route: 042
     Dates: start: 20230117, end: 20230117
  6. OCRELIZUMAB [Suspect]
     Active Substance: OCRELIZUMAB
     Route: 042
     Dates: start: 20220118, end: 20220118
  7. OCRELIZUMAB [Suspect]
     Active Substance: OCRELIZUMAB
     Route: 042
     Dates: start: 20201221, end: 20201221
  8. OCRELIZUMAB [Suspect]
     Active Substance: OCRELIZUMAB
     Route: 042
     Dates: start: 20200106, end: 20200106
  9. OCRELIZUMAB [Suspect]
     Active Substance: OCRELIZUMAB
     Route: 042
     Dates: start: 20230629, end: 20230629
  10. OCRELIZUMAB [Suspect]
     Active Substance: OCRELIZUMAB
     Route: 042
     Dates: start: 20231229, end: 20231229
  11. BEFACT FORTE [Concomitant]
     Route: 048
  12. STAURODORM [Concomitant]
     Indication: Insomnia
     Route: 048
  13. RIVOTRIL [Concomitant]
     Active Substance: CLONAZEPAM
     Route: 048
  14. MAGNESIUM [Concomitant]
     Active Substance: MAGNESIUM
     Dosage: 1 TABLET
     Route: 048
  15. METFORMIN HYDROCHLORIDE [Concomitant]
     Active Substance: METFORMIN HYDROCHLORIDE
     Route: 048
  16. SIMVASTATIN [Concomitant]
     Active Substance: SIMVASTATIN
     Indication: Hypercholesterolaemia
     Route: 048
     Dates: start: 20200512
  17. NABIXIMOLS [Concomitant]
     Active Substance: NABIXIMOLS
     Dosage: 1 PUFF
     Route: 048
     Dates: start: 20210222
  18. DALFAMPRIDINE [Concomitant]
     Active Substance: DALFAMPRIDINE
     Route: 048
     Dates: start: 20210521
  19. CHOLECALCIFEROL [Concomitant]
     Active Substance: CHOLECALCIFEROL
     Dosage: 3 CAPSULE
     Route: 048
     Dates: start: 20220118
  20. LIORESAL [Concomitant]
     Active Substance: BACLOFEN
     Route: 048
     Dates: start: 20220118
  21. ZOLPIDEM [Concomitant]
     Active Substance: ZOLPIDEM TARTRATE
     Indication: Insomnia
     Route: 048
  22. LEVOCETIRIZINE [Concomitant]
     Active Substance: LEVOCETIRIZINE
     Route: 048
  23. LEVOCETIRIZINE [Concomitant]
     Active Substance: LEVOCETIRIZINE
     Route: 048
     Dates: start: 20230629, end: 20230629
  24. CLINDAMYCIN [Concomitant]
     Active Substance: CLINDAMYCIN
     Route: 048
     Dates: start: 20230315, end: 20230322
  25. SILODOSIN [Concomitant]
     Active Substance: SILODOSIN
     Route: 048
     Dates: start: 202203
  26. SOLIFENACIN [Concomitant]
     Active Substance: SOLIFENACIN
     Route: 048
     Dates: start: 20230316
  27. SOLU-MEDROL [Concomitant]
     Active Substance: METHYLPREDNISOLONE SODIUM SUCCINATE
     Route: 042
     Dates: start: 20230629, end: 20230629
  28. PANTOPRAZOLE SODIUM [Concomitant]
     Active Substance: PANTOPRAZOLE SODIUM
     Route: 048
     Dates: start: 20230504, end: 20230531
  29. TRANEXAMIC ACID [Concomitant]
     Active Substance: TRANEXAMIC ACID
     Indication: Joint prosthesis user
     Route: 042
     Dates: start: 20230503, end: 20230503
  30. EPHEDRINE HYDROCHLORIDE [Concomitant]
     Active Substance: EPHEDRINE HYDROCHLORIDE
     Indication: Joint prosthesis user
     Route: 042
     Dates: start: 20230503, end: 20230503
  31. DEXAMETHASONE [Concomitant]
     Active Substance: DEXAMETHASONE
     Indication: Joint prosthesis user
     Route: 042
     Dates: start: 20230503, end: 20230503
  32. CEFAZOLIN SODIUM [Concomitant]
     Active Substance: CEFAZOLIN SODIUM
     Indication: Joint prosthesis user
     Route: 042
     Dates: start: 20230503, end: 20230503
  33. CEFAZOLIN SODIUM [Concomitant]
     Active Substance: CEFAZOLIN SODIUM
     Route: 042
     Dates: start: 20230504, end: 20230504
  34. IBUPROFEN B.BRAUN [Concomitant]
     Indication: Analgesic therapy
     Route: 042
     Dates: start: 20230503, end: 20230503
  35. IBUPROFEN [Concomitant]
     Active Substance: IBUPROFEN
     Indication: Analgesic therapy
     Route: 048
     Dates: start: 20230504, end: 20230506
  36. DIPRIVAN [Concomitant]
     Active Substance: ISOPROPYL ALCOHOL\PROPOFOL
     Indication: Sedation
     Route: 042
     Dates: start: 20230503, end: 20230503
  37. MARCAINE [Concomitant]
     Active Substance: BUPIVACAINE HYDROCHLORIDE
     Indication: Sedation
     Dates: start: 20230503, end: 20230503
  38. LIDOCAINE HYDROCHLORIDE [Concomitant]
     Active Substance: LIDOCAINE HYDROCHLORIDE
     Indication: Sedation
     Route: 058
     Dates: start: 20230503, end: 20230503
  39. TRAMADOL HYDROCHLORIDE [Concomitant]
     Active Substance: TRAMADOL HYDROCHLORIDE
     Indication: Analgesic therapy
     Route: 048
     Dates: start: 20230504, end: 20230510
  40. OXYCODONE HYDROCHLORIDE [Concomitant]
     Active Substance: OXYCODONE HYDROCHLORIDE
     Indication: Analgesic therapy
     Route: 048
     Dates: start: 20230504, end: 20230505
  41. ASPIRIN [Concomitant]
     Active Substance: ASPIRIN
     Indication: Prophylaxis
     Route: 048
     Dates: start: 20230507, end: 20230603
  42. NAPROXEN [Concomitant]
     Active Substance: NAPROXEN
     Indication: Analgesic therapy
     Route: 048
     Dates: start: 20230506

REACTIONS (1)
  - Erysipelas [Recovered/Resolved]

NARRATIVE: CASE EVENT DATE: 20230310
